FAERS Safety Report 10341945 (Version 1)
Quarter: 2014Q3

REPORT INFORMATION
  Report Type: Spontaneous
  Country: US (occurrence: US)
  Receive Date: 20140725
  Receipt Date: 20140725
  Transmission Date: 20150326
  Serious: No
  Sender: FDA-Public Use
  Company Number: US-JNJFOC-20140709499

PATIENT
  Sex: Male

DRUGS (1)
  1. FENTANYL TRANSDERMAL SYSTEM [Suspect]
     Active Substance: FENTANYL
     Indication: PRODUCT USED FOR UNKNOWN INDICATION
     Route: 062

REACTIONS (6)
  - Hyperhidrosis [Unknown]
  - Vomiting [Unknown]
  - Drug dose omission [Unknown]
  - Presyncope [Unknown]
  - Chills [Unknown]
  - Asthma [Unknown]

NARRATIVE: CASE EVENT DATE: 201406
